FAERS Safety Report 4824032-4 (Version None)
Quarter: 2005Q4

REPORT INFORMATION
  Report Type: 
  Country: None (occurrence: None)
  Receive Date: 20051108
  Receipt Date: 20051020
  Transmission Date: 20060501
  Serious: Yes (Other)
  Sender: FDA-Public Use
  Company Number: USA0510111523

PATIENT
  Age: 44 Year
  Sex: Male
  Weight: 103 kg

DRUGS (2)
  1. CYMBALTA [Suspect]
     Indication: MAJOR DEPRESSION
     Dosage: 50 MG DAY
     Dates: start: 20050716, end: 20050815
  2. LEXAPRO [Concomitant]

REACTIONS (1)
  - AGGRESSION [None]
